FAERS Safety Report 20737506 (Version 4)
Quarter: 2022Q4

REPORT INFORMATION
  Report Type: Report from Study
  Country: US (occurrence: US)
  Receive Date: 20220422
  Receipt Date: 20221219
  Transmission Date: 20230112
  Serious: No
  Sender: FDA-Public Use
  Company Number: US-BIOVITRUM-2022US05240

PATIENT
  Sex: Female

DRUGS (1)
  1. KINERET [Suspect]
     Active Substance: ANAKINRA
     Indication: Rheumatoid arthritis
     Dosage: 100MG/0.67ML
     Dates: start: 20201230

REACTIONS (13)
  - Pain in extremity [Unknown]
  - Infection [Unknown]
  - Irritable bowel syndrome [Unknown]
  - Gastrointestinal motility disorder [Unknown]
  - Limb injury [Unknown]
  - Injection site erythema [Unknown]
  - Injection site swelling [Unknown]
  - Injection site pruritus [Unknown]
  - Injection site urticaria [Unknown]
  - Injection site pain [Unknown]
  - Injection site warmth [Unknown]
  - Drug ineffective [Unknown]
  - Product dose omission issue [Unknown]
